FAERS Safety Report 23766999 (Version 3)
Quarter: 2024Q2

REPORT INFORMATION
  Report Type: Spontaneous
  Country: US (occurrence: US)
  Receive Date: 20240422
  Receipt Date: 20240530
  Transmission Date: 20240716
  Serious: No
  Sender: FDA-Public Use
  Company Number: US-HALEON-2167896

PATIENT

DRUGS (2)
  1. SENSODYNE FRESH MINT [Suspect]
     Active Substance: POTASSIUM NITRATE\SODIUM FLUORIDE
     Indication: Dental disorder prophylaxis
     Dosage: EXPDATE:20251031EXPDATE:20251031EXPDATE:20251031
  2. SENSODYNE SENSITIVITY AND GUM MINT [Suspect]
     Active Substance: STANNOUS FLUORIDE
     Indication: Dental disorder prophylaxis
     Dosage: EXPDATE:20250630EXPDATE:20250630EXPDATE:20250630

REACTIONS (1)
  - Drug effect less than expected [Unknown]
